FAERS Safety Report 7383315-7 (Version None)
Quarter: 2011Q1

REPORT INFORMATION
  Report Type: 
  Country: None (occurrence: None)
  Receive Date: 20110325
  Receipt Date: 20110325
  Transmission Date: 20110831
  Serious: Yes (Other)
  Sender: FDA-Public Use
  Company Number: None

PATIENT
  Age: 85 Year
  Sex: Male
  Weight: 43.0917 kg

DRUGS (1)
  1. LEVOFLOXACIN [Suspect]

REACTIONS (1)
  - BLOOD GLUCOSE DECREASED [None]
